FAERS Safety Report 6095315-8 (Version None)
Quarter: 2009Q1

REPORT INFORMATION
  Report Type: 
  Country: None (occurrence: None)
  Receive Date: 20090227
  Receipt Date: 20080306
  Transmission Date: 20090719
  Serious: No
  Sender: FDA-Public Use
  Company Number: A0713813A

PATIENT
  Sex: Female

DRUGS (4)
  1. LAMICTAL [Suspect]
     Indication: BIPOLAR DISORDER
     Dosage: 25MG PER DAY
     Route: 048
     Dates: start: 20080218
  2. XANAX [Concomitant]
  3. BIRTH CONTROL [Concomitant]
  4. EXCEDRIN [Concomitant]
     Indication: HEADACHE

REACTIONS (1)
  - HEADACHE [None]
